FAERS Safety Report 23951307 (Version 1)
Quarter: 2024Q2

REPORT INFORMATION
  Report Type: Spontaneous
  Country: DK (occurrence: DK)
  Receive Date: 20240607
  Receipt Date: 20240607
  Transmission Date: 20240715
  Serious: Yes (Death, Hospitalization, Other)
  Sender: FDA-Public Use
  Company Number: None

PATIENT
  Age: 41 Year
  Sex: Male
  Weight: 88 kg

DRUGS (5)
  1. BESPONSA [Suspect]
     Active Substance: INOTUZUMAB OZOGAMICIN
     Dosage: 1.8 MG/M2
     Route: 042
     Dates: start: 20240402, end: 20240423
  2. BESPONSA [Suspect]
     Active Substance: INOTUZUMAB OZOGAMICIN
     Dosage: FIRST CYCLE: 1.8 MG/M2 (TOTAL FOUR DOSES)
     Route: 042
     Dates: start: 20240401
  3. BESPONSA [Suspect]
     Active Substance: INOTUZUMAB OZOGAMICIN
     Dosage: FIRST CYCLE: 1.8 MG/M2 (TOTAL FOUR DOSES)
     Route: 042
     Dates: start: 20240410
  4. BESPONSA [Suspect]
     Active Substance: INOTUZUMAB OZOGAMICIN
     Dosage: FIRST CYCLE: 1.8 MG/M2 (TOTAL FOUR DOSES)
     Route: 042
     Dates: start: 20240416
  5. BESPONSA [Suspect]
     Active Substance: INOTUZUMAB OZOGAMICIN
     Dosage: SECOND CYCLE: 1.8 MG/M2 (TOTAL FOUR DOSES)
     Route: 042
     Dates: start: 20240423

REACTIONS (4)
  - Progressive multifocal leukoencephalopathy [Fatal]
  - Haemorrhage [Fatal]
  - Myelosuppression [Fatal]
  - Accidental overdose [Unknown]

NARRATIVE: CASE EVENT DATE: 20240401
